FAERS Safety Report 5228647-3 (Version None)
Quarter: 2007Q1

REPORT INFORMATION
  Report Type: 
  Country: None (occurrence: None)
  Receive Date: 20070205
  Receipt Date: 20070130
  Transmission Date: 20070707
  Serious: Yes (Hospitalization)
  Sender: FDA-Public Use
  Company Number: US-GLAXOSMITHKLINE-A0637662A

PATIENT
  Age: 41 Year
  Sex: Female

DRUGS (2)
  1. WELLBUTRIN [Suspect]
     Indication: DEPRESSION
     Dosage: 150MG THREE TIMES PER DAY
     Route: 048
     Dates: end: 20051001
  2. EFFEXOR [Concomitant]

REACTIONS (4)
  - AUTOIMMUNE DISORDER [None]
  - BLADDER DISORDER [None]
  - HEPATIC FUNCTION ABNORMAL [None]
  - LIVER DISORDER [None]
